FAERS Safety Report 17329174 (Version 1)
Quarter: 2020Q1

REPORT INFORMATION
  Report Type: Spontaneous
  Country: US (occurrence: US)
  Receive Date: 20200110
  Receipt Date: 20200110
  Transmission Date: 20200409
  Serious: No
  Sender: FDA-Public Use
  Company Number: None

PATIENT
  Age: 41 Year
  Sex: Female

DRUGS (1)
  1. TRIUMEQ [Suspect]
     Active Substance: ABACAVIR SULFATE\DOLUTEGRAVIR SODIUM\LAMIVUDINE
     Indication: HIV INFECTION
     Dosage: ?          OTHER DOSE:600-50-300MG;?
     Route: 048
     Dates: start: 201001

REACTIONS (6)
  - Sneezing [None]
  - Insurance issue [None]
  - Therapy cessation [None]
  - Chest pain [None]
  - Rhinorrhoea [None]
  - Cough [None]

NARRATIVE: CASE EVENT DATE: 20200106
